FAERS Safety Report 24694270 (Version 1)
Quarter: 2024Q4

REPORT INFORMATION
  Report Type: Spontaneous
  Country: CN (occurrence: CN)
  Receive Date: 20241204
  Receipt Date: 20241204
  Transmission Date: 20250114
  Serious: Yes (Life-Threatening, Other)
  Sender: ROCHE
  Company Number: CN-ROCHE-10000144054

PATIENT
  Age: 66 Year
  Sex: Male
  Weight: 73 kg

DRUGS (1)
  1. RITUXIMAB [Suspect]
     Active Substance: RITUXIMAB
     Indication: Chronic lymphocytic leukaemia
     Route: 042
     Dates: start: 20241114

REACTIONS (8)
  - Hypotension [Recovering/Resolving]
  - Confusional state [Recovering/Resolving]
  - Heart rate decreased [Recovering/Resolving]
  - Ventricular fibrillation [Recovering/Resolving]
  - Blood pressure immeasurable [Recovering/Resolving]
  - Oxygen saturation abnormal [Recovering/Resolving]
  - Off label use [Unknown]
  - Cardiac arrest [Recovering/Resolving]

NARRATIVE: CASE EVENT DATE: 20241122
